FAERS Safety Report 14700259 (Version 1)
Quarter: 2018Q1

REPORT INFORMATION
  Report Type: Spontaneous
  Country: CN (occurrence: CN)
  Receive Date: 20180330
  Receipt Date: 20180330
  Transmission Date: 20180509
  Serious: Yes (Other)
  Sender: FDA-Public Use
  Company Number: CN-JNJFOC-20180328532

PATIENT
  Age: 90 Year
  Sex: Female
  Weight: 42 kg

DRUGS (3)
  1. DUROGESIC D-TRANS [Suspect]
     Active Substance: FENTANYL
     Indication: TUMOUR PAIN
     Dosage: FIVE DAYS LATER, THE DOSE WAS CHANGED AS 1.5 PASTES
     Route: 062
     Dates: start: 201710, end: 20171025
  2. DUROGESIC D-TRANS [Suspect]
     Active Substance: FENTANYL
     Indication: TUMOUR PAIN
     Dosage: HALF PASTE OF 4.2 MG (25 MCG/HR) WAS APPLIED
     Route: 062
     Dates: start: 20171007, end: 201710
  3. DUROGESIC D-TRANS [Suspect]
     Active Substance: FENTANYL
     Indication: TUMOUR PAIN
     Dosage: THREE DAYS LATER, THE DOSE WAS INCREASED TO 3/4 PASTE OF 4.2 MG (25 MCG/HR) WAS APPLIED
     Route: 062
     Dates: start: 201710, end: 201710

REACTIONS (4)
  - Coma [Recovering/Resolving]
  - Off label use [Unknown]
  - Pain [Unknown]
  - Wrong technique in product usage process [Unknown]

NARRATIVE: CASE EVENT DATE: 201710
